FAERS Safety Report 25246118 (Version 1)
Quarter: 2025Q2

REPORT INFORMATION
  Report Type: Spontaneous
  Country: US (occurrence: None)
  Receive Date: 20250424
  Receipt Date: 20250424
  Transmission Date: 20250716
  Serious: No
  Sender: FDA-CTU
  Company Number: None

PATIENT
  Age: 52 Year
  Weight: 91 kg

DRUGS (1)
  1. SODIUM CHLORIDE [Suspect]
     Active Substance: SODIUM CHLORIDE
     Dates: start: 20250423, end: 20250423

REACTIONS (7)
  - Infusion related reaction [None]
  - Flushing [None]
  - Erythema [None]
  - Pruritus [None]
  - Dyspnoea [None]
  - Chest pain [None]
  - Swelling face [None]

NARRATIVE: CASE EVENT DATE: 20250424
